FAERS Safety Report 4532019-4 (Version None)
Quarter: 2004Q4

REPORT INFORMATION
  Report Type: 
  Country: None (occurrence: None)
  Receive Date: 20041217
  Receipt Date: 20041130
  Transmission Date: 20050328
  Serious: Yes (Hospitalization)
  Sender: FDA-Public Use
  Company Number: A01200406059

PATIENT
  Age: 37 Year
  Sex: Female

DRUGS (6)
  1. PLAVIX [Suspect]
     Indication: ANGIOPLASTY
     Dosage: 300 MG LOADING DOSE, THEN 75 MG DAILY ORAL
     Route: 048
     Dates: start: 20041122, end: 20041129
  2. PLAVIX [Suspect]
     Indication: MYOCARDIAL INFARCTION
     Dosage: 300 MG LOADING DOSE, THEN 75 MG DAILY ORAL
     Route: 048
     Dates: start: 20041122, end: 20041129
  3. PLAVIX [Suspect]
     Indication: STENT PLACEMENT
     Dosage: 300 MG LOADING DOSE, THEN 75 MG DAILY ORAL
     Route: 048
     Dates: start: 20041122, end: 20041129
  4. ASPIRIN [Concomitant]
  5. RAMIPRIL [Concomitant]
  6. ATORVASTATIN [Concomitant]

REACTIONS (4)
  - BACK PAIN [None]
  - CONTUSION [None]
  - PARAESTHESIA [None]
  - PERIPHERAL SENSORY NEUROPATHY [None]
